FAERS Safety Report 17882900 (Version 1)
Quarter: 2020Q2

REPORT INFORMATION
  Report Type: Report from Study
  Country: None (occurrence: US)
  Receive Date: 20200610
  Receipt Date: 20200610
  Transmission Date: 20200714
  Serious: Yes (Other)
  Sender: FDA-Public Use
  Company Number: US-ABBVIE-20K-163-3391829-00

PATIENT
  Sex: Female

DRUGS (1)
  1. HUMIRA [Suspect]
     Active Substance: ADALIMUMAB
     Indication: CROHN^S DISEASE
     Route: 058
     Dates: start: 20090223

REACTIONS (8)
  - Injection site pain [Unknown]
  - Neuropathy peripheral [Unknown]
  - Abdominal discomfort [Not Recovered/Not Resolved]
  - Bacterial infection [Not Recovered/Not Resolved]
  - Adverse food reaction [Not Recovered/Not Resolved]
  - Colitis [Unknown]
  - Dysphagia [Unknown]
  - Diarrhoea [Recovered/Resolved]
